FAERS Safety Report 23669412 (Version 1)
Quarter: 2024Q1

REPORT INFORMATION
  Report Type: Spontaneous
  Country: US (occurrence: None)
  Receive Date: 20240324
  Receipt Date: 20240324
  Transmission Date: 20240409
  Serious: Yes (unspecified)
  Sender: FDA-Public Use
  Company Number: None

PATIENT
  Age: 10 Year
  Sex: Male
  Weight: 101.9 kg

DRUGS (1)
  1. ASPARLAS [Suspect]
     Active Substance: CALASPARGASE PEGOL-MKNL
     Dosage: FREQUENCY : ONCE;?
     Route: 042
     Dates: start: 20230306, end: 20230501

REACTIONS (8)
  - Vomiting [None]
  - Tachycardia [None]
  - Dyspnoea [None]
  - Flushing [None]
  - Periorbital oedema [None]
  - Wheezing [None]
  - Drug ineffective [None]
  - Grunting [None]

NARRATIVE: CASE EVENT DATE: 20230424
